FAERS Safety Report 13297319 (Version 1)
Quarter: 2017Q1

REPORT INFORMATION
  Report Type: Spontaneous
  Country: US (occurrence: US)
  Receive Date: 20170304
  Receipt Date: 20170304
  Transmission Date: 20170428
  Serious: Yes (Other)
  Sender: FDA-Public Use
  Company Number: None

PATIENT
  Age: 52 Year
  Sex: Female
  Weight: 112.5 kg

DRUGS (1)
  1. PAIN RELIEF PATCHES CORALITE ( CAMPHOR (SYNTHETIC)\LEVOMENTHOL\METHYL SALICYLATE) [Suspect]
     Active Substance: CAMPHOR (SYNTHETIC)\LEVOMENTHOL\METHYL SALICYLATE
     Indication: PAIN IN EXTREMITY
     Dosage: ?          QUANTITY:20 PATCH(ES);?
     Route: 061
     Dates: start: 20160101, end: 20170304

REACTIONS (1)
  - Thermal burn [None]

NARRATIVE: CASE EVENT DATE: 20170228
